FAERS Safety Report 7740435-2 (Version None)
Quarter: 2011Q3

REPORT INFORMATION
  Report Type: 
  Country: None (occurrence: None)
  Receive Date: 20110909
  Receipt Date: 20110825
  Transmission Date: 20111222
  Serious: Yes (Hospitalization, Other)
  Sender: FDA-Public Use
  Company Number: US-CELGENEUS-163-21880-11010315

PATIENT
  Sex: Female
  Weight: 68.9 kg

DRUGS (23)
  1. TYLENOL-500 [Concomitant]
     Indication: PAIN
     Dosage: 1000 MILLIGRAM
     Route: 048
  2. PROCHLORPERAZINE [Concomitant]
     Indication: NAUSEA
     Dosage: 10 MILLIGRAM
     Route: 048
  3. AMBIEN [Concomitant]
     Dosage: 5MG-10MG
     Route: 048
  4. DEXAMETHASONE [Concomitant]
     Indication: MULTIPLE MYELOMA
     Dosage: 40 MILLIGRAM
     Route: 048
     Dates: start: 20101201
  5. ACYCLOVIR [Concomitant]
     Indication: PROPHYLAXIS
     Dosage: 800 MILLIGRAM
     Route: 065
     Dates: start: 20101201
  6. ASPIRIN [Concomitant]
     Dosage: 81 MILLIGRAM
     Route: 065
     Dates: start: 20110105
  7. NORVASC [Concomitant]
     Indication: HYPERTENSION
     Dosage: 10 MILLIGRAM
     Route: 048
  8. VITAMIN D [Concomitant]
     Dosage: 2000 UNITS
     Route: 048
  9. PROTON PUMP INHIBITOR [Concomitant]
     Indication: PROPHYLAXIS
     Route: 065
  10. ZOLEDRONIC ACID [Concomitant]
     Indication: MULTIPLE MYELOMA
     Dosage: 5 MG
     Route: 041
     Dates: start: 20100929
  11. LISINOPRIL [Concomitant]
     Indication: HYPERTENSION
     Dosage: 10 MILLIGRAM
     Route: 048
  12. REVLIMID [Suspect]
     Dosage: 5 MILLIGRAM
     Route: 048
     Dates: start: 20110328, end: 20110623
  13. REVLIMID [Suspect]
     Indication: MULTIPLE MYELOMA
     Dosage: 10 MILLIGRAM
     Route: 048
     Dates: start: 20101201
  14. ZOLEDRONIC ACID [Concomitant]
     Route: 041
     Dates: start: 20101122, end: 20110328
  15. METOPROLOL TARTRATE [Concomitant]
     Dosage: 50 MILLIGRAM
     Route: 048
  16. IMODIUM A-D [Concomitant]
     Route: 048
  17. FOSAMAX [Concomitant]
     Indication: OSTEOPOROSIS
     Route: 065
  18. WARFARIN SODIUM [Concomitant]
     Indication: PROPHYLAXIS
     Route: 065
     Dates: start: 20101201
  19. PRILOSEC [Concomitant]
     Dosage: 20 MILLIGRAM
     Route: 048
  20. PRAVACHOL [Concomitant]
     Dosage: 20 MILLIGRAM
     Route: 048
  21. VITAMIN B-12 [Concomitant]
     Route: 065
  22. CALCIUM GLUCONATE [Concomitant]
     Dosage: 2 GRAM
     Route: 041
     Dates: start: 20110401
  23. CALCIUM CARBONATE [Concomitant]
     Route: 048
     Dates: start: 20110401

REACTIONS (8)
  - RASH [None]
  - INTERNATIONAL NORMALISED RATIO INCREASED [None]
  - THROMBOCYTOPENIA [None]
  - HYPERTENSION [None]
  - HAEMATURIA [None]
  - ANAEMIA [None]
  - NEUTROPENIA [None]
  - OEDEMA PERIPHERAL [None]
